FAERS Safety Report 25857773 (Version 1)
Quarter: 2025Q3

REPORT INFORMATION
  Report Type: Spontaneous
  Country: EU (occurrence: EU)
  Receive Date: 20250929
  Receipt Date: 20250929
  Transmission Date: 20251021
  Serious: Yes (Life-Threatening, Other)
  Sender: TORRENT PHARMA INC.
  Company Number: EU-MLMSERVICE-20250912-PI643721-00285-1

PATIENT
  Age: 28 Year
  Sex: Female

DRUGS (1)
  1. RISPERIDONE [Suspect]
     Active Substance: RISPERIDONE
     Indication: Psychotic symptom
     Dosage: LOW-DOSE
     Route: 065
     Dates: start: 202407, end: 2024

REACTIONS (7)
  - Hyperprolactinaemia [Unknown]
  - Galactorrhoea [Unknown]
  - Indifference [Unknown]
  - Cognitive disorder [Unknown]
  - Vision blurred [Unknown]
  - Balance disorder [Unknown]
  - Drug intolerance [Unknown]

NARRATIVE: CASE EVENT DATE: 20240101
